FAERS Safety Report 24702866 (Version 1)
Quarter: 2024Q4

REPORT INFORMATION
  Report Type: Spontaneous
  Country: FR (occurrence: FR)
  Receive Date: 20241205
  Receipt Date: 20241205
  Transmission Date: 20250114
  Serious: Yes (Death)
  Sender: NOVARTIS
  Company Number: None

PATIENT
  Age: 59 Year
  Sex: Female

DRUGS (2)
  1. TAFINLAR [Suspect]
     Active Substance: DABRAFENIB MESYLATE
     Indication: Malignant melanoma
     Dosage: 150 MG, Q12H (75 MG 2 G?LULES LE MATIN ET 2 G?LULES LE SOIR ? PRENDRE PARVOIE ORALE ? JEUN, 1H AVANT
     Route: 048
     Dates: start: 2017
  2. MEKINIST [Suspect]
     Active Substance: TRAMETINIB DIMETHYL SULFOXIDE
     Indication: Malignant melanoma
     Dosage: 2 MG, QD 92 MG 1 COMPRIM? LE MATIN ? PRENDRE PAR VOIE ORALE ? JEUN,1H AVANT LE REPAS OU 2H APR?S LE
     Route: 048
     Dates: start: 2017

REACTIONS (1)
  - Pancreatitis acute [Fatal]

NARRATIVE: CASE EVENT DATE: 20241113
